FAERS Safety Report 6606446-5 (Version None)
Quarter: 2010Q1

REPORT INFORMATION
  Report Type: 
  Country: None (occurrence: None)
  Receive Date: 20100226
  Receipt Date: 20100215
  Transmission Date: 20100710
  Serious: Yes (Hospitalization, Other)
  Sender: FDA-Public Use
  Company Number: PHHY2010FR08324

PATIENT
  Age: 47 Year
  Sex: Male

DRUGS (2)
  1. COTAREG [Suspect]
     Indication: HYPERTENSION
     Dosage: 1 DF, DAILY
     Route: 048
     Dates: end: 20090725
  2. AVLOCARDYL [Concomitant]
     Dosage: 160 MG, UNK

REACTIONS (15)
  - AGITATION [None]
  - ANAEMIA MACROCYTIC [None]
  - ASTHENIA [None]
  - DECREASED APPETITE [None]
  - EROSIVE DUODENITIS [None]
  - GAMMA-GLUTAMYLTRANSFERASE ABNORMAL [None]
  - GENERAL PHYSICAL HEALTH DETERIORATION [None]
  - HAEMOGLOBIN DECREASED [None]
  - HEPATOMEGALY [None]
  - HYPERHIDROSIS [None]
  - HYPOALBUMINAEMIA [None]
  - HYPOKALAEMIA [None]
  - HYPONATRAEMIA [None]
  - MEAN CELL VOLUME INCREASED [None]
  - TREMOR [None]
